FAERS Safety Report 7468534-3 (Version None)
Quarter: 2011Q2

REPORT INFORMATION
  Report Type: 
  Country: None (occurrence: None)
  Receive Date: 20110509
  Receipt Date: 20110428
  Transmission Date: 20111010
  Serious: Yes (Death, Life-Threatening, Hospitalization, Other)
  Sender: FDA-Public Use
  Company Number: FR-KINGPHARMUSA00001-K201100511

PATIENT
  Age: 90 Year
  Sex: Female

DRUGS (6)
  1. RIFAMPICIN [Suspect]
     Indication: WOUND INFECTION STAPHYLOCOCCAL
     Dosage: 600 MG, QD
     Route: 048
     Dates: start: 20101012, end: 20101019
  2. ALTACE [Suspect]
     Dosage: 5 MG, QD
     Route: 048
     Dates: start: 20090801, end: 20101020
  3. ALTACE [Suspect]
     Dosage: UP TO 10 MG, QD
     Route: 048
     Dates: start: 20101022, end: 20101201
  4. ALTACE [Suspect]
     Dosage: BETWEEN 2.5 MG AND 10 MG, QD
     Route: 048
     Dates: start: 20101207, end: 20101215
  5. ALTACE [Suspect]
     Dosage: UNK
     Route: 048
     Dates: start: 20101202, end: 20101206
  6. CEFUROXIME [Concomitant]
     Indication: WOUND INFECTION STAPHYLOCOCCAL
     Dosage: UNK
     Dates: start: 20101010, end: 20101023

REACTIONS (5)
  - CONVULSION [None]
  - DEATH [None]
  - BLOOD CREATININE INCREASED [None]
  - GLOMERULAR FILTRATION RATE DECREASED [None]
  - RENAL FAILURE ACUTE [None]
